FAERS Safety Report 15033913 (Version 2)
Quarter: 2023Q4

REPORT INFORMATION
  Report Type: Report from Study
  Country: KR (occurrence: KR)
  Receive Date: 20180620
  Receipt Date: 20231102
  Transmission Date: 20240110
  Serious: Yes (Hospitalization)
  Sender: FDA-Public Use
  Company Number: KR-KYOWAKIRIN-2018AKK001693AA

PATIENT
  Age: 45 Year
  Sex: Female

DRUGS (11)
  1. PEGFILGRASTIM [Suspect]
     Active Substance: PEGFILGRASTIM
     Indication: Breast cancer
     Dosage: 6 MG, SINGLE
     Route: 058
     Dates: start: 20180324, end: 20180324
  2. PEGFILGRASTIM [Suspect]
     Active Substance: PEGFILGRASTIM
     Dosage: 6 MG, SINGLE
     Route: 058
     Dates: start: 20180414, end: 20180414
  3. PEGFILGRASTIM [Suspect]
     Active Substance: PEGFILGRASTIM
     Dosage: 6 MG, SINGLE
     Route: 058
     Dates: start: 20180505, end: 20180505
  4. CYCLOPHOSPHAMIDE [Concomitant]
     Active Substance: CYCLOPHOSPHAMIDE
     Indication: Breast cancer
     Dosage: 1120 MG
     Dates: start: 20180302, end: 20180302
  5. CYCLOPHOSPHAMIDE [Concomitant]
     Active Substance: CYCLOPHOSPHAMIDE
     Dosage: 1120 MG
     Dates: start: 20180323, end: 20180323
  6. CYCLOPHOSPHAMIDE [Concomitant]
     Active Substance: CYCLOPHOSPHAMIDE
     Dosage: 1120 MG
     Dates: start: 20180413, end: 20180413
  7. DOCETAXEL [Concomitant]
     Active Substance: DOCETAXEL\DOCETAXEL ANHYDROUS
     Indication: Breast cancer
     Dosage: 140 MG
     Dates: start: 20180302, end: 20180302
  8. DOCETAXEL [Concomitant]
     Active Substance: DOCETAXEL\DOCETAXEL ANHYDROUS
     Dosage: 140 MG
     Dates: start: 20180323, end: 20180323
  9. DOCETAXEL [Concomitant]
     Active Substance: DOCETAXEL\DOCETAXEL ANHYDROUS
     Dosage: 140 MG
     Dates: start: 20180413, end: 20180413
  10. DOCETAXEL [Concomitant]
     Active Substance: DOCETAXEL\DOCETAXEL ANHYDROUS
     Dosage: UNK
  11. DOCETAXEL [Concomitant]
     Active Substance: DOCETAXEL\DOCETAXEL ANHYDROUS
     Dosage: UNK

REACTIONS (1)
  - Infection [Recovered/Resolved]

NARRATIVE: CASE EVENT DATE: 20180529
